FAERS Safety Report 9753649 (Version 1)
Quarter: 2013Q4

REPORT INFORMATION
  Report Type: Report from Study
  Country: AR (occurrence: AR)
  Receive Date: 20131213
  Receipt Date: 20131213
  Transmission Date: 20140711
  Serious: Yes (Hospitalization)
  Sender: FDA-Public Use
  Company Number: PHHY2013AR146259

PATIENT
  Sex: Female

DRUGS (1)
  1. DIOVAN [Suspect]
     Indication: HYPERTENSION
     Dosage: 160 MG, DAILY
     Route: 048

REACTIONS (4)
  - Fall [Recovering/Resolving]
  - Injury [Recovering/Resolving]
  - Skeletal injury [Recovering/Resolving]
  - Musculoskeletal chest pain [Recovering/Resolving]
